FAERS Safety Report 5010381-6 (Version None)
Quarter: 2006Q2

REPORT INFORMATION
  Report Type: 
  Country: None (occurrence: None)
  Receive Date: 20060523
  Receipt Date: 20060508
  Transmission Date: 20061013
  Serious: Yes (Death)
  Sender: FDA-Public Use
  Company Number: 2006S1004086

PATIENT
  Age: 46 Year
  Sex: Female

DRUGS (9)
  1. CLOZAPINE [Suspect]
     Dosage: SEE IMAGE
     Route: 048
     Dates: start: 20060217, end: 20060101
  2. CLOZAPINE [Suspect]
     Dosage: SEE IMAGE
     Route: 048
     Dates: start: 20060217, end: 20060101
  3. HALOPERIDOL [Concomitant]
  4. VALPROATE SODIUM [Concomitant]
  5. BENZTROPINE MESYLATE [Concomitant]
  6. OXYBUTYNIN [Concomitant]
  7. TELMISARTAN [Concomitant]
  8. SIMVASTATIN [Concomitant]
  9. PAROXETINE HYDROCHLORIDE [Concomitant]

REACTIONS (2)
  - CEREBROVASCULAR ACCIDENT [None]
  - HYPERTENSION [None]
